FAERS Safety Report 8849973 (Version 1)
Quarter: 2012Q4

REPORT INFORMATION
  Report Type: Report from Study
  Country: GB (occurrence: GB)
  Receive Date: 20121019
  Receipt Date: 20121019
  Transmission Date: 20130627
  Serious: Yes (Death)
  Sender: FDA-Public Use
  Company Number: GB-CELGENEUS-167-21880-12102170

PATIENT
  Age: 73 Year
  Sex: Male

DRUGS (2)
  1. REVLIMID [Suspect]
     Indication: MULTIPLE MYELOMA
     Dosage: 15 Milligram
     Route: 048
     Dates: start: 20120321, end: 20121012
  2. DALTEPARIN [Concomitant]
     Indication: PROPHYLAXIS
     Dosage: 5000 IU (International Unit)
     Route: 058

REACTIONS (1)
  - Death [Fatal]
